FAERS Safety Report 18766900 (Version 1)
Quarter: 2021Q1

REPORT INFORMATION
  Report Type: Spontaneous
  Country: US (occurrence: US)
  Receive Date: 20210120
  Receipt Date: 20210120
  Transmission Date: 20210419
  Serious: Yes (Hospitalization)
  Sender: FDA-Public Use
  Company Number: None

PATIENT
  Sex: Female

DRUGS (9)
  1. ZYRTEC [Concomitant]
     Active Substance: CETIRIZINE HYDROCHLORIDE
  2. ALIGN [Concomitant]
     Active Substance: BIFIDOBACTERIUM LONGUM SUBSP. INFANTIS
  3. PREDNISONE. [Concomitant]
     Active Substance: PREDNISONE
  4. MULTI VIT TAB [Concomitant]
  5. AFINITOR [Suspect]
     Active Substance: EVEROLIMUS
     Indication: SMALL INTESTINE CARCINOMA
     Route: 048
     Dates: start: 20210106
  6. OCTREOTIDE. [Suspect]
     Active Substance: OCTREOTIDE
     Indication: SMALL INTESTINE CARCINOMA
     Route: 058
     Dates: start: 20170718
  7. CITRACAL [Concomitant]
     Active Substance: CALCIUM CITRATE
  8. DIGESTIVE CAP [Concomitant]
  9. XERMELO [Concomitant]
     Active Substance: TELOTRISTAT ETHYL

REACTIONS (1)
  - Hospitalisation [None]
